FAERS Safety Report 10534610 (Version 3)
Quarter: 2015Q1

REPORT INFORMATION
  Report Type: Report from Study
  Country: JP (occurrence: JP)
  Receive Date: 20141022
  Receipt Date: 20150220
  Transmission Date: 20150720
  Serious: Yes (Life-Threatening, Hospitalization)
  Sender: FDA-Public Use
  Company Number: JP-GLAXOSMITHKLINE-JP2014JPN003446

PATIENT
  Age: 33 Year
  Sex: Female
  Weight: 54 kg

DRUGS (6)
  1. LAMOTRIGINE. [Suspect]
     Active Substance: LAMOTRIGINE
     Indication: BIPOLAR II DISORDER
     Dosage: 50 MG, QD
     Route: 048
     Dates: start: 20120820, end: 20120902
  2. ROHYPNOL [Concomitant]
     Active Substance: FLUNITRAZEPAM
     Dosage: 1 MG, QD
     Dates: start: 20120820
  3. MYSLEE [Concomitant]
     Active Substance: ZOLPIDEM TARTRATE
     Dosage: 5 MG, PRN
     Dates: start: 20120820, end: 20120823
  4. NO DRUG NAME [Concomitant]
     Indication: DEPRESSION
     Dosage: 25 MG, 1D
     Dates: start: 20120820
  5. MYSLEE [Concomitant]
     Active Substance: ZOLPIDEM TARTRATE
     Dosage: 10 MG, QD
     Dates: start: 20120823, end: 20120830
  6. SEROQUEL [Concomitant]
     Active Substance: QUETIAPINE FUMARATE
     Dosage: 25 MG, QD
     Dates: start: 20120823, end: 20120830

REACTIONS (3)
  - Rash [Recovered/Resolved]
  - Oral pain [Unknown]
  - Drug eruption [Unknown]

NARRATIVE: CASE EVENT DATE: 20120901
